FAERS Safety Report 7822340-6 (Version None)
Quarter: 2011Q4

REPORT INFORMATION
  Report Type: 
  Country: None (occurrence: None)
  Receive Date: 20111018
  Receipt Date: 20100921
  Transmission Date: 20120403
  Serious: No
  Sender: FDA-Public Use
  Company Number: US-ASTRAZENECA-2010SE44502

PATIENT
  Age: 57 Year
  Sex: Female
  Weight: 54.4 kg

DRUGS (3)
  1. SYMBICORT [Suspect]
     Indication: ASTHMA
     Dosage: 320 MCG BID
     Route: 055
  2. PROPOXIFEN [Concomitant]
  3. VALIUM [Concomitant]

REACTIONS (7)
  - FATIGUE [None]
  - DYSPNOEA EXERTIONAL [None]
  - BALANCE DISORDER [None]
  - DIZZINESS [None]
  - DYSPHONIA [None]
  - DYSPHEMIA [None]
  - TREMOR [None]
